FAERS Safety Report 21172702 (Version 3)
Quarter: 2023Q1

REPORT INFORMATION
  Report Type: Report from Study
  Country: CA (occurrence: CA)
  Receive Date: 20220804
  Receipt Date: 20230125
  Transmission Date: 20230418
  Serious: Yes (Hospitalization)
  Sender: FDA-Public Use
  Company Number: CA-Horizon-2020HZN01226

PATIENT

DRUGS (6)
  1. PROCYSBI [Suspect]
     Active Substance: CYSTEAMINE BITARTRATE
     Indication: Cystinosis
     Dosage: 200 MG BID (TARGET), 150 MG BID (CURRENT)1 EVERY 12 HOURS
     Route: 048
     Dates: start: 20200901
  2. SODIUM PHOSPHATE [Concomitant]
     Active Substance: SODIUM PHOSPHATE
     Route: 065
  3. ALFACALCIDOL [Concomitant]
     Active Substance: ALFACALCIDOL
     Dosage: 1/D
     Route: 065
  4. VITAMIN D NOS [Concomitant]
     Active Substance: VITAMIN D NOS
     Dosage: 800IU/D, 1 EVERY 1 DAYS
  5. IRON [Concomitant]
     Active Substance: IRON
     Dosage: DAILY AND SHOT Q2WEEKS FOR HEMOGLOBIN
     Route: 065
     Dates: start: 202011
  6. CHOLECALCIFEROL [Concomitant]
     Active Substance: CHOLECALCIFEROL
     Route: 065

REACTIONS (8)
  - Weight gain poor [Unknown]
  - Vomiting [Unknown]
  - Hypophagia [Unknown]
  - Decreased appetite [Unknown]
  - Illness [Unknown]
  - Blood iron decreased [Unknown]
  - Haemoglobin decreased [Unknown]
  - Product administration error [Unknown]

NARRATIVE: CASE EVENT DATE: 20201101
